FAERS Safety Report 7154088-8 (Version None)
Quarter: 2010Q4

REPORT INFORMATION
  Report Type: 
  Country: None (occurrence: None)
  Receive Date: 20101124
  Receipt Date: 20101112
  Transmission Date: 20110411
  Serious: Yes (Other)
  Sender: FDA-Public Use
  Company Number: DSJ-2010-17212

PATIENT
  Age: 61 Year
  Sex: Male
  Weight: 57.2 kg

DRUGS (5)
  1. OLMESARTAN MEDOXOMIL [Suspect]
     Indication: HYPERTENSION
     Dosage: PER ORAL
     Route: 048
     Dates: start: 20060701, end: 20090324
  2. NESP (DARBEPOETIN ALFA) (DARBEPOETIN ALFA) [Concomitant]
  3. EPOETIN ALFA (EPOETIN ALFA) (EPOETIN ALFA) [Concomitant]
  4. CALTAN (CALCIUM CARBONATE) (GRANULES) (CALCIUM CARBONATE) [Concomitant]
  5. MYSLEE (ZOLPIDEM TARTRATE) (TABLET) (ZOLPIDEM TARTRATE) [Concomitant]

REACTIONS (3)
  - HYPOTENSION [None]
  - PERITONITIS [None]
  - THERAPEUTIC RESPONSE DECREASED [None]
